FAERS Safety Report 24618075 (Version 2)
Quarter: 2024Q4

REPORT INFORMATION
  Report Type: Spontaneous
  Country: CN (occurrence: CN)
  Receive Date: 20241114
  Receipt Date: 20241202
  Transmission Date: 20250114
  Serious: Yes (Hospitalization)
  Sender: ROCHE
  Company Number: CN-ROCHE-10000121531

PATIENT
  Sex: Female

DRUGS (1)
  1. KADCYLA [Suspect]
     Active Substance: ADO-TRASTUZUMAB EMTANSINE
     Indication: Breast cancer
     Dosage: ON 12/SEP/2024, SHE RECEIVED LAST DOSE OF TRASTUZUMAB.
     Route: 065
     Dates: start: 20240117

REACTIONS (1)
  - Platelet count decreased [Not Recovered/Not Resolved]
